FAERS Safety Report 5357464-9 (Version None)
Quarter: 2007Q2

REPORT INFORMATION
  Report Type: 
  Country: None (occurrence: None)
  Receive Date: 20070614
  Receipt Date: 20070531
  Transmission Date: 20071010
  Serious: Yes (Hospitalization, Other)
  Sender: FDA-Public Use
  Company Number: FR-ELI_LILLY_AND_COMPANY-FR200703005820

PATIENT
  Age: 86 Year
  Sex: Female
  Weight: 54 kg

DRUGS (2)
  1. FORTEO [Suspect]
     Indication: OSTEOPOROSIS
     Dosage: 20 UG, DAILY (1/D)
     Route: 058
     Dates: start: 20061028
  2. CIPRALAN [Concomitant]
     Indication: CONDUCTION DISORDER
     Dosage: 1 D/F, DAILY (1/D)
     Route: 048
     Dates: start: 20051001

REACTIONS (1)
  - LOSS OF CONSCIOUSNESS [None]
